FAERS Safety Report 6747928-5 (Version None)
Quarter: 2010Q2

REPORT INFORMATION
  Report Type: 
  Country: None (occurrence: None)
  Receive Date: 20100528
  Receipt Date: 20100519
  Transmission Date: 20101027
  Serious: Yes (Other)
  Sender: FDA-Public Use
  Company Number: SE-ELI_LILLY_AND_COMPANY-SE201005005252

PATIENT
  Age: 56 Year
  Sex: Male

DRUGS (3)
  1. ALIMTA [Suspect]
     Indication: LUNG NEOPLASM MALIGNANT
     Dosage: 975 MG, UNKNOWN
     Route: 065
     Dates: start: 20100426
  2. EMEND [Concomitant]
     Dosage: UNK, UNKNOWN
     Route: 065
  3. ALOXI [Concomitant]

REACTIONS (1)
  - ANAPHYLACTIC REACTION [None]
